FAERS Safety Report 23758389 (Version 2)
Quarter: 2024Q2

REPORT INFORMATION
  Report Type: Spontaneous
  Country: US (occurrence: US)
  Receive Date: 20240418
  Receipt Date: 20240503
  Transmission Date: 20240717
  Serious: Yes (Other)
  Sender: FDA-Public Use
  Company Number: US-TEVA-VS-3185051

PATIENT
  Age: 6 Year
  Sex: Female

DRUGS (2)
  1. LANSOPRAZOLE [Suspect]
     Active Substance: LANSOPRAZOLE
     Indication: Product used for unknown indication
     Route: 065
  2. VITAMIN D [Suspect]
     Active Substance: VITAMIN D NOS
     Indication: Hypocalcaemia
     Dosage: 1000 UNITS
     Route: 065

REACTIONS (4)
  - Hyperparathyroidism secondary [Recovering/Resolving]
  - Calcium metabolism disorder [Recovering/Resolving]
  - Drug ineffective [Unknown]
  - Malabsorption [Recovering/Resolving]
